FAERS Safety Report 4546725-9 (Version None)
Quarter: 2005Q1

REPORT INFORMATION
  Report Type: 
  Country: None (occurrence: None)
  Receive Date: 20050105
  Receipt Date: 20041115
  Transmission Date: 20050727
  Serious: Yes (Death, Hospitalization)
  Sender: FDA-Public Use
  Company Number: 2002128213PL

PATIENT
  Age: 57 Year
  Sex: Female
  Weight: 74 kg

DRUGS (8)
  1. IRINOTECAN HCL [Suspect]
     Indication: SMALL CELL LUNG CANCER STAGE UNSPECIFIED
     Dosage: 130 MG (CYCLIC), INTRAVENOUS
     Route: 042
     Dates: start: 20020918, end: 20020925
  2. PLATAMINE (CISPLATIN) [Suspect]
     Indication: SMALL CELL LUNG CANCER STAGE UNSPECIFIED
  3. KETOPROFEN [Concomitant]
  4. ENALAPRIL (ENALAPRIL) [Concomitant]
  5. NITRENDIPINE (NITRENDIPINE) [Concomitant]
  6. THEOPHYLLINE [Concomitant]
  7. DIAZEPAM [Concomitant]
  8. BETAHISTINE (BETAHISTINE) [Concomitant]

REACTIONS (23)
  - ANOREXIA [None]
  - ANXIETY [None]
  - BLOOD LACTATE DEHYDROGENASE INCREASED [None]
  - BLOOD POTASSIUM INCREASED [None]
  - BLOOD SODIUM DECREASED [None]
  - CONFUSIONAL STATE [None]
  - DEHYDRATION [None]
  - DISORIENTATION [None]
  - FLUID INTAKE REDUCED [None]
  - GENERAL PHYSICAL HEALTH DETERIORATION [None]
  - HAEMOGLOBIN DECREASED [None]
  - HEART RATE INCREASED [None]
  - MULTI-ORGAN FAILURE [None]
  - NAUSEA [None]
  - RED BLOOD CELL COUNT DECREASED [None]
  - RENAL FAILURE [None]
  - THERAPY NON-RESPONDER [None]
  - TOXIC SHOCK SYNDROME [None]
  - TUMOUR LYSIS SYNDROME [None]
  - TUMOUR NECROSIS [None]
  - URINE OUTPUT DECREASED [None]
  - WHEEZING [None]
  - WHITE BLOOD CELL COUNT DECREASED [None]
